FAERS Safety Report 9736092 (Version 1)
Quarter: 2013Q4

REPORT INFORMATION
  Report Type: Report from Study
  Country: RU (occurrence: RU)
  Receive Date: 20131206
  Receipt Date: 20131206
  Transmission Date: 20140711
  Serious: Yes (Hospitalization)
  Sender: FDA-Public Use
  Company Number: RU-GLAXOSMITHKLINE-B0949670A

PATIENT
  Age: 61 Year
  Sex: Male

DRUGS (7)
  1. OMACOR [Suspect]
     Indication: MYOCARDIAL INFARCTION
     Dosage: 1000MG PER DAY
     Route: 048
     Dates: start: 20130319
  2. CORDARONE [Concomitant]
     Indication: VENTRICULAR ARRHYTHMIA
     Dosage: 200MG PER DAY
     Route: 048
     Dates: start: 20130603
  3. BISOPROLOL [Concomitant]
     Dosage: 75MG PER DAY
     Route: 048
     Dates: start: 20130520
  4. ACETYLSALICYLIC ACID [Concomitant]
     Dosage: 75MG PER DAY
     Route: 048
     Dates: start: 20130123
  5. PERINDOPRIL [Concomitant]
     Dosage: 5MG PER DAY
     Route: 048
     Dates: start: 20130123
  6. ATORVASTATIN [Concomitant]
     Dosage: 40MG PER DAY
     Route: 048
     Dates: start: 20130628
  7. CLOPIDOGREL [Concomitant]
     Dosage: 75MG PER DAY
     Route: 048
     Dates: start: 20130123

REACTIONS (3)
  - Post procedural haemorrhage [Recovered/Resolved]
  - Atrial flutter [Recovered/Resolved]
  - Atrioventricular block [Recovered/Resolved]
